FAERS Safety Report 8042861-3 (Version None)
Quarter: 2012Q1

REPORT INFORMATION
  Report Type: 
  Country: None (occurrence: None)
  Receive Date: 20120112
  Receipt Date: 20120105
  Transmission Date: 20120608
  Serious: Yes (Hospitalization)
  Sender: FDA-Public Use
  Company Number: JP-EISAI INC-E7389-01623-CLI-JP

PATIENT
  Sex: Female
  Weight: 40 kg

DRUGS (29)
  1. HALAVEN [Suspect]
     Indication: BREAST CANCER RECURRENT
     Dates: start: 20110804
  2. FUROSEMIDE [Concomitant]
  3. LANSOPRAZOLE [Concomitant]
     Indication: PROPHYLAXIS
     Route: 048
  4. MEDROXYPROGESTERONE ACETATE [Concomitant]
     Indication: BREAST CANCER RECURRENT
     Route: 048
     Dates: start: 20100603
  5. INKALBON [Concomitant]
  6. FLOKISYL [Concomitant]
     Indication: PROPHYLAXIS
     Route: 048
  7. HALAVEN [Suspect]
     Indication: METASTASES TO LIVER
  8. DECADRON [Concomitant]
     Indication: PROPHYLAXIS
  9. FAMOTIDINE [Concomitant]
     Indication: PROPHYLAXIS
  10. PHENYTOIN SODIUM CAP [Concomitant]
     Indication: PROPHYLAXIS
     Route: 048
  11. AZUNOL [Concomitant]
     Indication: PROPHYLAXIS
  12. MAGNESIUM SULFATE [Concomitant]
     Indication: CONSTIPATION
  13. CELESTAMINE TAB [Concomitant]
     Indication: PROPHYLAXIS
     Route: 048
  14. HALAVEN [Suspect]
     Indication: METASTASES TO LUNG
  15. MEDROXYPROGESTERONE ACETATE [Concomitant]
  16. PACIF [Concomitant]
     Route: 048
  17. LOXOMARIN [Concomitant]
     Route: 048
  18. TPN ELECTROLYTES IN PLASTIC CONTAINER [Concomitant]
  19. MEDROXYPROGESTERONE ACETATE [Concomitant]
  20. GRANISETRON [Concomitant]
     Indication: PROPHYLAXIS
  21. HALAVEN [Suspect]
     Indication: METASTASES TO BONE
  22. NEOPHAGEN [Concomitant]
     Indication: PROPHYLAXIS
  23. ZOMETA [Concomitant]
     Indication: METASTASES TO BONE
  24. CODEINE PHOSPHATE HYDRATE [Concomitant]
     Route: 048
  25. SUPELZON [Concomitant]
     Indication: PROPHYLAXIS
  26. HALAVEN [Suspect]
  27. PRECOAT [Concomitant]
     Route: 048
  28. ELIETEN [Concomitant]
     Indication: PROPHYLAXIS
     Route: 048
  29. GLYCEOL [Concomitant]

REACTIONS (5)
  - FEBRILE NEUTROPENIA [None]
  - NEUTROPENIA [None]
  - PNEUMONIA [None]
  - LEUKOPENIA [None]
  - LYMPHOPENIA [None]
